FAERS Safety Report 7395769-0 (Version None)
Quarter: 2011Q2

REPORT INFORMATION
  Report Type: 
  Country: None (occurrence: None)
  Receive Date: 20110405
  Receipt Date: 20110325
  Transmission Date: 20111010
  Serious: Yes (Other)
  Sender: FDA-Public Use
  Company Number: DE-BAYER-2011-026458

PATIENT
  Age: 81 Year
  Sex: Female

DRUGS (1)
  1. CIPRO [Suspect]
     Indication: ABSCESS
     Dosage: UNK
     Route: 048
     Dates: start: 20101020, end: 20101027

REACTIONS (2)
  - TENDON RUPTURE [None]
  - TENDONITIS [None]
